FAERS Safety Report 17955889 (Version 1)
Quarter: 2020Q2

REPORT INFORMATION
  Report Type: Report from Study
  Country: None (occurrence: US)
  Receive Date: 20200629
  Receipt Date: 20200629
  Transmission Date: 20200714
  Serious: Yes (Other)
  Sender: FDA-Public Use
  Company Number: US-ABBVIE-20K-163-3461030-00

PATIENT
  Sex: Female

DRUGS (1)
  1. HUMIRA [Suspect]
     Active Substance: ADALIMUMAB
     Indication: RHEUMATOID ARTHRITIS
     Dosage: CITRATE FREE
     Route: 058

REACTIONS (19)
  - Pain [Unknown]
  - Spinal operation [Unknown]
  - Knee operation [Unknown]
  - Gait disturbance [Unknown]
  - Pain in extremity [Unknown]
  - Surgery [Unknown]
  - Back pain [Unknown]
  - Shoulder operation [Unknown]
  - Diabetes mellitus [Unknown]
  - Musculoskeletal pain [Unknown]
  - Hysterectomy [Unknown]
  - Appendicectomy [Unknown]
  - Arthralgia [Not Recovered/Not Resolved]
  - Mass [Unknown]
  - Foot operation [Unknown]
  - Musculoskeletal stiffness [Unknown]
  - Peripheral swelling [Unknown]
  - Dental prosthesis placement [Unknown]
  - Insomnia [Unknown]
